FAERS Safety Report 25765537 (Version 1)
Quarter: 2025Q3

REPORT INFORMATION
  Report Type: Spontaneous
  Country: US (occurrence: US)
  Receive Date: 20250905
  Receipt Date: 20250905
  Transmission Date: 20251021
  Serious: Yes (Hospitalization)
  Sender: ROCHE
  Company Number: US-ROCHE-10000377042

PATIENT
  Sex: Male

DRUGS (3)
  1. XOLAIR [Suspect]
     Active Substance: OMALIZUMAB
     Indication: Product used for unknown indication
     Dosage: TAKES A TOTAL OF 375MG EVERY TWO WEEKS.
     Route: 058
     Dates: start: 2025
  2. XOLAIR [Suspect]
     Active Substance: OMALIZUMAB
     Dosage: TAKES A TOTAL OF 375MG EVERY TWO WEEKS.
     Route: 058
     Dates: start: 2025
  3. PROLIA [Concomitant]
     Active Substance: DENOSUMAB
     Indication: Osteoporosis
     Route: 058

REACTIONS (4)
  - Fungal oesophagitis [Unknown]
  - Wrong technique in device usage process [Unknown]
  - Underdose [Unknown]
  - Accidental exposure to product [Unknown]

NARRATIVE: CASE EVENT DATE: 20250827
